FAERS Safety Report 19710550 (Version 5)
Quarter: 2021Q4

REPORT INFORMATION
  Report Type: Report from Study
  Country: CN (occurrence: CN)
  Receive Date: 20210816
  Receipt Date: 20211014
  Transmission Date: 20220303
  Serious: Yes (Hospitalization)
  Sender: FDA-Public Use
  Company Number: CN-PFIZER INC-202101016341

PATIENT
  Age: 45 Year
  Sex: Female
  Weight: 51 kg

DRUGS (23)
  1. EPIRUBICIN HYDROCHLORIDE [Suspect]
     Active Substance: EPIRUBICIN HYDROCHLORIDE
     Indication: Triple negative breast cancer
     Dosage: 137 MG, ONCE
     Route: 041
     Dates: start: 20210716, end: 20210716
  2. PACLITAXEL [Suspect]
     Active Substance: PACLITAXEL
     Indication: Triple negative breast cancer
     Dosage: 154 MG, D1, D8, D15
     Route: 041
     Dates: start: 20210323, end: 20210407
  3. PACLITAXEL [Suspect]
     Active Substance: PACLITAXEL
     Dosage: 153 MG, D1, D8, D15
     Route: 041
     Dates: start: 20210421, end: 20210702
  4. INVESTIGATIONAL PRODUCT [Suspect]
     Active Substance: INVESTIGATIONAL PRODUCT
     Indication: Triple negative breast cancer
     Dosage: 200 MG, D1, D15
     Route: 041
     Dates: start: 20210323, end: 20210819
  5. CYCLOPHOSPHAMIDE [Suspect]
     Active Substance: CYCLOPHOSPHAMIDE
     Indication: Triple negative breast cancer
     Dosage: 765 MG, ONCE
     Route: 041
     Dates: start: 20210716, end: 20210716
  6. CARBOPLATIN [Suspect]
     Active Substance: CARBOPLATIN
     Indication: Triple negative breast cancer
     Dosage: 151 MG, ONCE (FOR INJECTION)
     Route: 041
     Dates: start: 20210323, end: 20210323
  7. CARBOPLATIN [Suspect]
     Active Substance: CARBOPLATIN
     Dosage: 153 MG, ONCE (FOR INJECTION)
     Route: 041
     Dates: start: 20210330, end: 20210330
  8. CARBOPLATIN [Suspect]
     Active Substance: CARBOPLATIN
     Dosage: 181 MG, ONCE (FOR INJECTION)
     Route: 041
     Dates: start: 20210407, end: 20210407
  9. CARBOPLATIN [Suspect]
     Active Substance: CARBOPLATIN
     Dosage: 159 MG, ONCE (FOR INJECTION)
     Route: 041
     Dates: start: 20210421, end: 20210421
  10. CARBOPLATIN [Suspect]
     Active Substance: CARBOPLATIN
     Dosage: 168 MG, ONCE (FOR INJECTION)
     Route: 041
     Dates: start: 20210428, end: 20210428
  11. CARBOPLATIN [Suspect]
     Active Substance: CARBOPLATIN
     Dosage: 146 MG, ONCE (FOR INJECTION)
     Route: 041
     Dates: start: 20210507, end: 20210507
  12. CARBOPLATIN [Suspect]
     Active Substance: CARBOPLATIN
     Dosage: 154 MG, ONCE (FOR INJECTION)
     Route: 041
     Dates: start: 20210521, end: 20210521
  13. CARBOPLATIN [Suspect]
     Active Substance: CARBOPLATIN
     Dosage: 169 MG, ONCE (FOR INJECTION)
     Route: 041
     Dates: start: 20210528, end: 20210528
  14. CARBOPLATIN [Suspect]
     Active Substance: CARBOPLATIN
     Dosage: 159 MG, ONCE (FOR INJECTION)
     Route: 041
     Dates: start: 20210604, end: 20210604
  15. CARBOPLATIN [Suspect]
     Active Substance: CARBOPLATIN
     Dosage: 158 MG, ONCE (FOR INJECTION)
     Route: 041
     Dates: start: 20210618, end: 20210618
  16. CARBOPLATIN [Suspect]
     Active Substance: CARBOPLATIN
     Dosage: 171 MG, ONCE (FOR INJECTION)
     Route: 041
     Dates: start: 20210625, end: 20210625
  17. CARBOPLATIN [Suspect]
     Active Substance: CARBOPLATIN
     Dosage: 170 MG, ONCE (FOR INJECTION)
     Route: 041
     Dates: start: 20210702, end: 20210702
  18. IPRATROPIUM BROMIDE [Concomitant]
     Active Substance: IPRATROPIUM BROMIDE
     Indication: Prophylaxis
     Dosage: 500 UG, TID (SOLUTION FOR INHALATION, ATOMIZATION INHALATION)
     Route: 055
     Dates: start: 20210726, end: 20210801
  19. BUDESONIDE [Concomitant]
     Active Substance: BUDESONIDE
     Indication: Prophylaxis
     Dosage: 1 MG, TID (SUSPENSION FOR INHALATION, ATOMIZATION INHALATION)
     Route: 055
     Dates: start: 20210726, end: 20210801
  20. VITAMIN C [Concomitant]
     Active Substance: ASCORBIC ACID
     Indication: Nutritional supplementation
     Dosage: 2 G, ONCE
     Route: 041
     Dates: start: 20210726, end: 20210726
  21. VITAMIN B6 [Concomitant]
     Active Substance: PYRIDOXINE HYDROCHLORIDE
     Indication: Nutritional supplementation
     Dosage: 200 MG, ONCE
     Route: 041
     Dates: start: 20210726, end: 20210726
  22. POTASSIUM CHLORIDE [Concomitant]
     Active Substance: POTASSIUM CHLORIDE
     Indication: Fluid replacement
     Dosage: 1 G, ONCE
     Route: 041
     Dates: start: 20210726, end: 20210726
  23. SODIUM BICARBONATE [Concomitant]
     Active Substance: SODIUM BICARBONATE
     Indication: Stomatitis
     Dosage: 15 ML, TID (GARGLE)
     Route: 048
     Dates: start: 20210726, end: 20210801

REACTIONS (5)
  - White blood cell count decreased [Recovered/Resolved]
  - Neutrophil count decreased [Recovered/Resolved]
  - Platelet count decreased [Recovered/Resolved]
  - C-reactive protein increased [Recovered/Resolved]
  - Pyrexia [Recovered/Resolved]

NARRATIVE: CASE EVENT DATE: 20210726
